FAERS Safety Report 4586020-5 (Version None)
Quarter: 2005Q1

REPORT INFORMATION
  Report Type: 
  Country: None (occurrence: None)
  Receive Date: 20050125
  Receipt Date: 20040927
  Transmission Date: 20050727
  Serious: No
  Sender: FDA-Public Use
  Company Number: USA040568372

PATIENT
  Age: 66 Year
  Sex: Female

DRUGS (1)
  1. FORTEO [Suspect]
     Indication: OSTEOPOROSIS
     Dosage: 20 UG DAY
     Dates: start: 20040301

REACTIONS (9)
  - ERYTHEMA [None]
  - EYE SWELLING [None]
  - MUSCLE SPASMS [None]
  - PRURITUS [None]
  - RASH [None]
  - RASH MACULO-PAPULAR [None]
  - RASH PRURITIC [None]
  - SWELLING FACE [None]
  - URTICARIA [None]
